FAERS Safety Report 6803410-8 (Version None)
Quarter: 2010Q2

REPORT INFORMATION
  Report Type: 
  Country: None (occurrence: None)
  Receive Date: 20100628
  Receipt Date: 20100621
  Transmission Date: 20101027
  Serious: Yes (Death, Other)
  Sender: FDA-Public Use
  Company Number: DE-ROCHE-710303

PATIENT
  Age: 42 Year
  Sex: Female

DRUGS (2)
  1. CAPECITABINE [Suspect]
     Dosage: STOPPED AFTER 1.5 CYCLES.
     Route: 048
  2. LAPATINIB [Suspect]
     Dosage: STOPPED AFTER 1.5 CYCLES.
     Route: 065

REACTIONS (2)
  - DIARRHOEA [None]
  - SEPSIS [None]
